FAERS Safety Report 5651550-1 (Version None)
Quarter: 2008Q1

REPORT INFORMATION
  Report Type: 
  Country: None (occurrence: None)
  Receive Date: 20080131
  Receipt Date: 20071114
  Transmission Date: 20080703
  Serious: No
  Sender: FDA-Public Use
  Company Number: US200711003595

PATIENT
  Age: 34 Year
  Sex: Female

DRUGS (4)
  1. BYETTA [Suspect]
     Indication: TYPE 1 DIABETES MELLITUS
     Dosage: 5, 2/D, SUBCUTANEOUS
     Route: 058
     Dates: start: 20071107
  2. EXENATIDE 5MCG PEN, DISPOSABLE DEVICE (EXENATIDE PEN (5MCG)) PEN,DISPO [Concomitant]
  3. NOVOLOG [Concomitant]
  4. LANTUS [Concomitant]

REACTIONS (2)
  - FATIGUE [None]
  - NAUSEA [None]
